FAERS Safety Report 8421347-8 (Version None)
Quarter: 2012Q2

REPORT INFORMATION
  Report Type: 
  Country: None (occurrence: None)
  Receive Date: 20120608
  Receipt Date: 20120604
  Transmission Date: 20120825
  Serious: Yes (Death, Hospitalization)
  Sender: FDA-Public Use
  Company Number: PHHY2012FR048343

PATIENT
  Sex: Male

DRUGS (8)
  1. PREDNISOLONE [Suspect]
     Indication: PAIN
     Dates: start: 20120201, end: 20120313
  2. VOLTAREN [Suspect]
     Indication: BACK PAIN
     Dates: start: 20120207, end: 20120214
  3. TEMAZEPAM [Suspect]
     Indication: PAIN
     Dates: start: 20120201, end: 20120313
  4. ACETAMINOPHEN W/ CODEINE [Suspect]
     Indication: BACK PAIN
     Dates: start: 20120207, end: 20120214
  5. NEXIUM [Suspect]
     Indication: BACK PAIN
     Dates: start: 20120207, end: 20120213
  6. AUGMENTIN [Suspect]
     Indication: BRONCHIAL DISORDER
     Dates: start: 20120307, end: 20120314
  7. ACETYLCYSTEINE [Suspect]
     Indication: BRONCHIAL DISORDER
     Dates: start: 20120307, end: 20120313
  8. BRONCHOKOD [Suspect]
     Indication: BRONCHIAL DISORDER
     Dates: start: 20120307, end: 20120313

REACTIONS (13)
  - CONJUNCTIVAL HYPERAEMIA [None]
  - SKIN LESION [None]
  - AGITATION [None]
  - SKIN EXFOLIATION [None]
  - GENERAL PHYSICAL HEALTH DETERIORATION [None]
  - CONFUSIONAL STATE [None]
  - PAIN IN EXTREMITY [None]
  - MULTI-ORGAN FAILURE [None]
  - ACUTE RESPIRATORY DISTRESS SYNDROME [None]
  - TOXIC EPIDERMAL NECROLYSIS [None]
  - SEPTIC SHOCK [None]
  - ORAL MUCOSA EROSION [None]
  - PYREXIA [None]
